FAERS Safety Report 25192469 (Version 1)
Quarter: 2025Q2

REPORT INFORMATION
  Report Type: Spontaneous
  Country: CN (occurrence: CN)
  Receive Date: 20250414
  Receipt Date: 20250414
  Transmission Date: 20250717
  Serious: Yes (Hospitalization)
  Sender: NOVARTIS
  Company Number: CN-002147023-NVSC2025CN060616

PATIENT
  Age: 49 Year
  Sex: Female
  Weight: 80 kg

DRUGS (3)
  1. ENTRESTO [Suspect]
     Active Substance: SACUBITRIL\VALSARTAN
     Indication: Supraventricular tachycardia
     Dosage: 100 MG, QD
     Route: 048
     Dates: start: 20220505, end: 20250407
  2. ENTRESTO [Suspect]
     Active Substance: SACUBITRIL\VALSARTAN
     Indication: Hypertension
  3. ENTRESTO [Suspect]
     Active Substance: SACUBITRIL\VALSARTAN
     Indication: Supraventricular tachycardia

REACTIONS (2)
  - Blood creatinine increased [Unknown]
  - Palpitations [Unknown]

NARRATIVE: CASE EVENT DATE: 20250401
